FAERS Safety Report 8145669-3 (Version None)
Quarter: 2012Q1

REPORT INFORMATION
  Report Type: 
  Country: None (occurrence: None)
  Receive Date: 20120217
  Receipt Date: 20110204
  Transmission Date: 20120608
  Serious: No
  Sender: FDA-Public Use
  Company Number: US-ALLERGAN-1101698US

PATIENT
  Age: 30 Year

DRUGS (1)
  1. TAZORAC [Suspect]
     Indication: ACNE
     Dosage: USED AT NIGHT ON ENTIRE FACE
     Route: 061
     Dates: start: 20100201, end: 20101201

REACTIONS (1)
  - SKIN HYPERPIGMENTATION [None]
